FAERS Safety Report 9817771 (Version 1)
Quarter: 2014Q1

REPORT INFORMATION
  Report Type: Spontaneous
  Country: US (occurrence: US)
  Receive Date: 20140115
  Receipt Date: 20140115
  Transmission Date: 20141002
  Serious: Yes (Death)
  Sender: FDA-Public Use
  Company Number: US-009507513-1401USA003864

PATIENT
  Sex: Female

DRUGS (2)
  1. PEGINTRON [Suspect]
     Indication: HEPATIC CIRRHOSIS
     Dosage: 0.4 MICROGRAM, QW
     Route: 058
     Dates: start: 20100309
  2. PEGINTRON [Suspect]
     Indication: LIVER TRANSPLANT

REACTIONS (2)
  - Death [Fatal]
  - Off label use [Unknown]
